FAERS Safety Report 14031707 (Version 2)
Quarter: 2025Q1

REPORT INFORMATION
  Report Type: Spontaneous
  Country: ES (occurrence: ES)
  Receive Date: 20171003
  Receipt Date: 20250310
  Transmission Date: 20250408
  Serious: Yes (Other)
  Sender: GLENMARK
  Company Number: ES-GLENMARK PHARMACEUTICALS-2017GMK029095

PATIENT
  Age: 80 Year
  Sex: Female

DRUGS (2)
  1. ETORICOXIB [Suspect]
     Active Substance: ETORICOXIB
     Indication: Product used for unknown indication
     Route: 048
  2. SULFAMETHOXAZOLE\TRIMETHOPRIM [Suspect]
     Active Substance: SULFAMETHOXAZOLE\TRIMETHOPRIM
     Indication: Product used for unknown indication
     Dosage: UNK, OD
     Route: 065

REACTIONS (2)
  - Drug reaction with eosinophilia and systemic symptoms [Unknown]
  - Hypersensitivity [Unknown]
